FAERS Safety Report 23489589 (Version 4)
Quarter: 2024Q3

REPORT INFORMATION
  Report Type: Spontaneous
  Country: US (occurrence: US)
  Receive Date: 20240206
  Receipt Date: 20240918
  Transmission Date: 20241017
  Serious: Yes (Other)
  Sender: ROCHE
  Company Number: US-ROCHE-3459947

PATIENT
  Age: 28 Year
  Sex: Female
  Weight: 75.75 kg

DRUGS (2)
  1. XOLAIR [Suspect]
     Active Substance: OMALIZUMAB
     Indication: Chronic spontaneous urticaria
     Route: 058
     Dates: start: 202203
  2. XOLAIR [Suspect]
     Active Substance: OMALIZUMAB

REACTIONS (9)
  - Accidental exposure to product [Unknown]
  - Connective tissue disorder [Not Recovered/Not Resolved]
  - Device issue [Unknown]
  - Postural orthostatic tachycardia syndrome [Unknown]
  - Off label use [Unknown]
  - Concussion [Unknown]
  - Road traffic accident [Unknown]
  - Hypersensitivity [Unknown]
  - Vomiting [Unknown]

NARRATIVE: CASE EVENT DATE: 20220901
